FAERS Safety Report 8063492-5 (Version None)
Quarter: 2012Q1

REPORT INFORMATION
  Report Type: 
  Country: None (occurrence: None)
  Receive Date: 20120117
  Receipt Date: 20120103
  Transmission Date: 20120608
  Serious: Yes (Death)
  Sender: FDA-Public Use
  Company Number: B0773469A

PATIENT
  Age: 40 Year
  Sex: Female

DRUGS (4)
  1. DIAZEPAM [Suspect]
  2. LAMOTRIGINE [Suspect]
  3. PETROL (FORMULATION UNKNOWN) (PETROL) [Suspect]
  4. DULOXETINE (FORMULATION UNKNOWN) (GENERIC) (DULOXETINE) [Suspect]

REACTIONS (1)
  - COMPLETED SUICIDE [None]
